FAERS Safety Report 9398528 (Version 1)
Quarter: 2013Q3

REPORT INFORMATION
  Report Type: Report from Study
  Country: US (occurrence: US)
  Receive Date: 20130712
  Receipt Date: 20130712
  Transmission Date: 20140515
  Serious: Yes (Death, Other)
  Sender: FDA-Public Use
  Company Number: US-PFIZER INC-2013085421

PATIENT
  Age: 41 Year
  Sex: Male
  Weight: 81 kg

DRUGS (18)
  1. DACOMITINIB [Suspect]
     Indication: NON-SMALL CELL LUNG CANCER
     Dosage: 45 MG, REGIMEN: DAILY CONTINUOUS (COHORT I)
     Route: 048
     Dates: start: 20130227, end: 20130308
  2. PLACEBO [Suspect]
     Indication: NON-SMALL CELL LUNG CANCER
     Dosage: 100 MG, 2X/DAY
     Route: 048
     Dates: start: 20130227, end: 20130308
  3. MORPHINE SULFATE [Suspect]
     Indication: PAIN
     Dosage: 30 MG, BID, EXTENDED RELEASE
     Route: 048
     Dates: start: 20130227, end: 20130308
  4. MORPHINE IR [Suspect]
     Indication: PAIN
     Dosage: 15 MG, EVERY 4 HOURS AS NEEDED
     Route: 048
     Dates: start: 20130227, end: 20130308
  5. EMTRIVA [Concomitant]
     Indication: HIV INFECTION
     Dosage: 200 MG, DAILY
     Route: 048
     Dates: start: 1993, end: 20130308
  6. LOVENOX [Concomitant]
     Indication: DEEP VEIN THROMBOSIS
     Dosage: 80 MG, BID
     Route: 058
     Dates: start: 20120425, end: 20130308
  7. HYDROCHLOROTHIAZIDE [Concomitant]
     Indication: HYPERTENSION
     Dosage: 25 MG, DAILY
     Route: 048
     Dates: end: 20130308
  8. ZOFRON [Concomitant]
     Indication: NAUSEA
     Dosage: 8 MG, EVERY 8 HOURS PRN
     Route: 048
     Dates: end: 20130308
  9. RALTEGRAVIR [Concomitant]
     Indication: HIV INFECTION
     Dosage: 400 MG, 2X/DAY
     Route: 048
     Dates: start: 1993, end: 20130308
  10. TENOFOVIR [Concomitant]
     Indication: HIV INFECTION
     Dosage: 300 MG, DAILY
     Route: 048
     Dates: start: 1993, end: 20130308
  11. COMPAZINE [Concomitant]
     Indication: NAUSEA
     Dosage: 10 MG, Q6 HRS PRN
     Route: 048
     Dates: end: 20130308
  12. BACLOFEN [Concomitant]
     Indication: MUSCLE SPASMS
     Dosage: 5 MG, THREE TIME A DAY
     Route: 048
     Dates: start: 20130307, end: 20130308
  13. K-DUR [Concomitant]
     Indication: HYPOKALAEMIA
     Dosage: 80 MEQ, ONCE
     Route: 048
     Dates: start: 20130225, end: 20130225
  14. K-LOR [Concomitant]
     Indication: HYPOKALAEMIA
     Dosage: 40 MEQ, ONCE
     Route: 048
     Dates: start: 20130307, end: 20130307
  15. POTASSIUM CHLORIDE [Concomitant]
     Indication: HYPOKALAEMIA
     Dosage: 40 MEQ, ONCE
     Route: 042
     Dates: start: 20130307, end: 20130307
  16. PROPOFOL [Concomitant]
     Indication: SEDATION
     Dosage: ONCE
     Route: 042
     Dates: start: 20130308, end: 20130308
  17. VERSED [Concomitant]
     Indication: SEDATION
     Dosage: ONCE
     Route: 042
     Dates: start: 20130308, end: 20130308
  18. OXYCODONE [Concomitant]
     Indication: PAIN
     Dosage: UNK
     Dates: start: 201207

REACTIONS (3)
  - Death [Fatal]
  - Fatigue [None]
  - Toxicity to various agents [None]
